FAERS Safety Report 21104138 (Version 1)
Quarter: 2022Q3

REPORT INFORMATION
  Report Type: Spontaneous
  Country: US (occurrence: US)
  Receive Date: 20220720
  Receipt Date: 20220720
  Transmission Date: 20221026
  Serious: No
  Sender: FDA-Public Use
  Company Number: US-BRISTOL-MYERS SQUIBB COMPANY-2022-068407

PATIENT
  Age: 80 Year
  Sex: Male

DRUGS (1)
  1. REVLIMID [Suspect]
     Active Substance: LENALIDOMIDE
     Indication: Plasma cell myeloma
     Dosage: FREQ: TAKE 1 CAPSULE (15MG) BY MOUTH DAILY FOR 3   WEEKS ON, THEN 1 WEEK OFF
     Route: 048
     Dates: start: 20180823

REACTIONS (1)
  - Nasopharyngitis [Not Recovered/Not Resolved]
